FAERS Safety Report 11021868 (Version 2)
Quarter: 2015Q2

REPORT INFORMATION
  Report Type: Report from Study
  Country: BR (occurrence: BR)
  Receive Date: 20150413
  Receipt Date: 20150423
  Transmission Date: 20150821
  Serious: Yes (Life-Threatening, Hospitalization, Other)
  Sender: FDA-Public Use
  Company Number: PHHY2015BR016179

PATIENT
  Age: 33 Year
  Sex: Male
  Weight: 113 kg

DRUGS (8)
  1. SANDOSTATIN LAR DEPOT [Suspect]
     Active Substance: OCTREOTIDE ACETATE
     Indication: BRAIN NEOPLASM
     Dosage: EACH 28 DAYS
     Route: 030
  2. DEPOSTERON [Concomitant]
     Indication: HORMONE LEVEL ABNORMAL
  3. PREDNISONE. [Concomitant]
     Active Substance: PREDNISONE
     Indication: PRODUCT USED FOR UNKNOWN INDICATION
     Dosage: UNK
     Route: 065
  4. LEVOTHYROXINE [Concomitant]
     Active Substance: LEVOTHYROXINE
     Indication: PRODUCT USED FOR UNKNOWN INDICATION
     Dosage: UNK
     Route: 065
  5. DEPOSTERON [Concomitant]
     Indication: LIBIDO DECREASED
     Dosage: EACH 20 DAYS
     Route: 065
  6. SANDOSTATIN LAR DEPOT [Suspect]
     Active Substance: OCTREOTIDE ACETATE
     Dosage: EACH 20 DAYS
     Route: 030
  7. SANDOSTATIN LAR DEPOT [Suspect]
     Active Substance: OCTREOTIDE ACETATE
     Dosage: EACH 28 DAYS
     Route: 030
  8. OMEPRAZOLE. [Concomitant]
     Active Substance: OMEPRAZOLE
     Indication: DRUG TOXICITY PROPHYLAXIS
     Dosage: 1 DF, QD (IN THE MORNING).
     Route: 065

REACTIONS (9)
  - Cerebrovascular accident [Not Recovered/Not Resolved]
  - Headache [Unknown]
  - Brain oedema [Unknown]
  - Seizure [Not Recovered/Not Resolved]
  - Off label use [Unknown]
  - Pain [Unknown]
  - Coma [Unknown]
  - Patient-device incompatibility [Recovering/Resolving]
  - Memory impairment [Not Recovered/Not Resolved]

NARRATIVE: CASE EVENT DATE: 201406
